FAERS Safety Report 4299968-6 (Version None)
Quarter: 2004Q1

REPORT INFORMATION
  Report Type: 
  Country: None (occurrence: None)
  Receive Date: 20040218
  Receipt Date: 20040206
  Transmission Date: 20041129
  Serious: Yes (Hospitalization)
  Sender: FDA-Public Use
  Company Number: A044-002-004838

PATIENT
  Age: 74 Year
  Sex: Male
  Weight: 70 kg

DRUGS (11)
  1. ARICEPT [Suspect]
     Indication: DEMENTIA ALZHEIMER'S TYPE
     Dosage: 5 MG, 1 IN 1 D, ORAL
     Route: 048
     Dates: start: 20030618, end: 20030803
  2. SELEXID (PIVMECILLINAM HYDROCHLORIDE) [Concomitant]
  3. ZYPREXA [Concomitant]
  4. TRUXAL (CHLORPROTHIXENE HYDROCHLORIDE) [Concomitant]
  5. DEPRAKINE RETARD (VALPROATE SODIUM) [Concomitant]
  6. NITRAZEPAM [Concomitant]
  7. CIPRAMIL (CITALOPRAM HYDROBROMIDE) [Concomitant]
  8. LACTULOSE [Concomitant]
  9. LAMICTAL [Concomitant]
  10. MAGNYL (ACETYLSALICYLIC ACID) [Concomitant]
  11. BETOLVEX (CYANOCOBALAMIN-TANNIN COMPLEX) [Concomitant]

REACTIONS (7)
  - CONFUSIONAL STATE [None]
  - DELUSION [None]
  - DEPRESSION [None]
  - PSYCHOMOTOR HYPERACTIVITY [None]
  - PSYCHOTIC DISORDER [None]
  - SLEEP DISORDER [None]
  - SPEECH DISORDER [None]
